FAERS Safety Report 8852520 (Version 1)
Quarter: 2012Q4

REPORT INFORMATION
  Report Type: Report from Study
  Country: DE (occurrence: DE)
  Receive Date: 20121022
  Receipt Date: 20121022
  Transmission Date: 20130627
  Serious: Yes (Hospitalization)
  Sender: FDA-Public Use
  Company Number: PHHY2012DE094129

PATIENT
  Sex: Female
  Weight: 85 kg

DRUGS (6)
  1. FTY 720 [Suspect]
     Indication: MULTIPLE SCLEROSIS
     Dosage: 0.5 mg, daily
     Route: 048
     Dates: start: 20121017
  2. ATACAND [Concomitant]
     Dosage: 16 mg, UNK
  3. UBRETID [Concomitant]
     Dosage: 5 mg, UNK
  4. LYRICA [Concomitant]
     Indication: DYSAESTHESIA
     Dosage: 75 mg, BID
     Route: 048
  5. REMIFEMIN PLUS [Concomitant]
     Dosage: 0.25 mg, UNK
  6. TAMSULOSIN [Concomitant]
     Dosage: 0.4 mg, UNK

REACTIONS (1)
  - Electrocardiogram QT prolonged [Recovered/Resolved]
